FAERS Safety Report 5308222-2 (Version None)
Quarter: 2007Q2

REPORT INFORMATION
  Report Type: 
  Country: None (occurrence: None)
  Receive Date: 20070426
  Receipt Date: 20070419
  Transmission Date: 20071010
  Serious: Yes (Other)
  Sender: FDA-Public Use
  Company Number: 2006UW02122

PATIENT
  Age: 80 Year
  Sex: Female
  Weight: 59 kg

DRUGS (4)
  1. NEXIUM [Suspect]
     Indication: GASTROOESOPHAGEAL REFLUX DISEASE
     Route: 048
     Dates: start: 20050101
  2. CALCIUM [Concomitant]
  3. MAGNESIUM [Concomitant]
     Route: 048
  4. IRON [Concomitant]

REACTIONS (2)
  - BLINDNESS UNILATERAL [None]
  - DIARRHOEA [None]
